FAERS Safety Report 8859065 (Version 1)
Quarter: 2012Q4

REPORT INFORMATION
  Report Type: Spontaneous
  Country: GB (occurrence: None)
  Receive Date: 20121023
  Receipt Date: 20121023
  Transmission Date: 20130627
  Serious: Yes (Disabling)
  Sender: FDA-Public Use
  Company Number: 1454449

PATIENT
  Age: 69 Year

DRUGS (10)
  1. VANCOMYCIN HYDROCHLORIDE [Suspect]
     Indication: DRUG USE FOR UNKNOWN INDICATION
     Route: 041
     Dates: start: 20120820
  2. FUROSEMIDE [Suspect]
     Indication: DRUG USE FOR UNKNOWN INDICATION
     Route: 048
  3. ANAGRELIDE [Concomitant]
  4. BISOPROLOL [Concomitant]
  5. ENOXAPARIN [Concomitant]
  6. GANCICLOVIR [Concomitant]
  7. METRONIDAZOLE [Concomitant]
  8. ONDANSETRON [Concomitant]
  9. PARACETAMOL [Concomitant]
  10. PREDNISOLONE [Concomitant]

REACTIONS (2)
  - Drug interaction [None]
  - Hearing impaired [None]
